FAERS Safety Report 4916950-3 (Version None)
Quarter: 2006Q1

REPORT INFORMATION
  Report Type: 
  Country: None (occurrence: None)
  Receive Date: 20060221
  Receipt Date: 20060209
  Transmission Date: 20060701
  Serious: Yes (Hospitalization)
  Sender: FDA-Public Use
  Company Number: FR-JNJFOC-20060202570

PATIENT
  Age: 59 Year
  Sex: Male

DRUGS (6)
  1. REMICADE [Suspect]
     Indication: RHEUMATOID ARTHRITIS
     Route: 042
  2. CORTANCYL [Suspect]
     Indication: RHEUMATOID ARTHRITIS
     Route: 048
  3. NOVATREX [Suspect]
     Indication: RHEUMATOID ARTHRITIS
     Route: 048
  4. NIFEDIPINE [Concomitant]
     Indication: ESSENTIAL HYPERTENSION
     Route: 048
  5. IXPRIM [Concomitant]
     Indication: RHEUMATOID ARTHRITIS
     Route: 048
  6. APROVEL [Concomitant]
     Indication: ESSENTIAL HYPERTENSION
     Route: 048

REACTIONS (1)
  - LEGIONELLA INFECTION [None]
